FAERS Safety Report 15339453 (Version 3)
Quarter: 2019Q3

REPORT INFORMATION
  Report Type: Report from Study
  Country: IT (occurrence: IT)
  Receive Date: 20180831
  Receipt Date: 20190903
  Transmission Date: 20191004
  Serious: Yes (Other)
  Sender: FDA-Public Use
  Company Number: PHHY2018IT081341

PATIENT
  Sex: Female

DRUGS (1)
  1. COSENTYX [Suspect]
     Active Substance: SECUKINUMAB
     Indication: ARTHRITIS
     Dosage: 300 MG, EVERY 28 DAYS
     Route: 065
     Dates: start: 20180327

REACTIONS (5)
  - Product use in unapproved indication [Unknown]
  - Pain [Unknown]
  - Haemorrhage [Unknown]
  - Tooth disorder [Unknown]
  - Drug ineffective for unapproved indication [Unknown]
